FAERS Safety Report 19771951 (Version 2)
Quarter: 2021Q4

REPORT INFORMATION
  Report Type: Spontaneous
  Country: US (occurrence: US)
  Receive Date: 20210901
  Receipt Date: 20211028
  Transmission Date: 20220303
  Serious: Yes (Other)
  Sender: FDA-Public Use
  Company Number: US-ROCHE-2901081

PATIENT
  Age: 62 Year
  Sex: Female

DRUGS (3)
  1. XOLAIR [Suspect]
     Active Substance: OMALIZUMAB
     Indication: Asthma
     Dosage: 150MG/ML
     Route: 058
  2. XOLAIR [Suspect]
     Active Substance: OMALIZUMAB
  3. XOLAIR [Suspect]
     Active Substance: OMALIZUMAB

REACTIONS (2)
  - Anaphylactic reaction [Unknown]
  - Arthropod sting [Unknown]

NARRATIVE: CASE EVENT DATE: 20210812
